FAERS Safety Report 7019313-2 (Version None)
Quarter: 2010Q3

REPORT INFORMATION
  Report Type: 
  Country: None (occurrence: None)
  Receive Date: 20100922
  Receipt Date: 20100913
  Transmission Date: 20110219
  Serious: Yes (Hospitalization)
  Sender: FDA-Public Use
  Company Number: 2010MA002591

PATIENT
  Sex: Male

DRUGS (2)
  1. DIAZEPAM [Suspect]
     Dosage: PO
     Route: 047
  2. PROMETHAZINE [Suspect]
     Dosage: PO
     Route: 048

REACTIONS (11)
  - AGGRESSION [None]
  - AGITATION [None]
  - DRUG EFFECT DECREASED [None]
  - INCOHERENT [None]
  - INCORRECT DOSE ADMINISTERED [None]
  - NO THERAPEUTIC RESPONSE [None]
  - POISONING [None]
  - SEDATION [None]
  - SINUS TACHYCARDIA [None]
  - SUICIDE ATTEMPT [None]
  - TACHYPNOEA [None]
